FAERS Safety Report 13285053 (Version 1)
Quarter: 2017Q1

REPORT INFORMATION
  Report Type: Spontaneous
  Country: IN (occurrence: IN)
  Receive Date: 20170301
  Receipt Date: 20170301
  Transmission Date: 20170428
  Serious: Yes (Hospitalization)
  Sender: FDA-Public Use
  Company Number: IN-MYLANLABS-2017M1012226

PATIENT

DRUGS (8)
  1. METHOTREXATE. [Suspect]
     Active Substance: METHOTREXATE
     Indication: OSTEOSARCOMA
     Dosage: HIGH DOSE
     Route: 065
  2. OLANZAPINE. [Suspect]
     Active Substance: OLANZAPINE
     Indication: PROPHYLAXIS OF NAUSEA AND VOMITING
     Dosage: 5 MG DAILY
     Route: 048
  3. APREPITANT. [Concomitant]
     Active Substance: APREPITANT
     Dosage: AND 80 MG ON DAYS 2 AND 3 OF CHEMOTHERAPY CYCLE
     Route: 065
  4. DEXAMETHASONE. [Concomitant]
     Active Substance: DEXAMETHASONE
     Indication: PROPHYLAXIS OF NAUSEA AND VOMITING
     Dosage: 4 MG 6 HOURLY DURING THE CHEMOTHERAPY
     Route: 065
  5. APREPITANT. [Concomitant]
     Active Substance: APREPITANT
     Indication: PROPHYLAXIS OF NAUSEA AND VOMITING
     Dosage: 125 MG ON DAY 1 OF CHEMOTHERAPY CYCLE AND
     Route: 065
  6. CISPLATIN MYLAN [Suspect]
     Active Substance: CISPLATIN
     Indication: OSTEOSARCOMA
     Dosage: ON DAYS 1 AND 2 OF CHEMOTHERAPY CYCLE
     Route: 065
  7. GRANISETRON [Concomitant]
     Active Substance: GRANISETRON
     Indication: PROPHYLAXIS OF NAUSEA AND VOMITING
     Dosage: 1.4 MG ONCE DAILY DURING THE CHEMOTHERAPY
     Route: 042
  8. DOXORUBICIN MYLAN [Suspect]
     Active Substance: DOXORUBICIN
     Indication: OSTEOSARCOMA
     Dosage: ON DAYS 1 AND 2 OF CHEMOTHERAPY CYCLE
     Route: 065

REACTIONS (3)
  - Vomiting [Recovered/Resolved]
  - Somnolence [Unknown]
  - Nausea [Recovered/Resolved]
